FAERS Safety Report 7969712-7 (Version None)
Quarter: 2011Q4

REPORT INFORMATION
  Report Type: 
  Country: None (occurrence: None)
  Receive Date: 20111121
  Receipt Date: 20110815
  Transmission Date: 20120403
  Serious: No
  Sender: FDA-Public Use
  Company Number: 1000022883

PATIENT
  Sex: Female

DRUGS (2)
  1. VIIBRYD [Suspect]
     Dosage: 10MG (10 MG, 1 IN 1 D), ORAL
     Route: 048
     Dates: start: 20110101, end: 20110101
  2. VIIBRYD [Suspect]
     Dosage: 40 MILLIGRAM (40 MG, 1 IN 1 D), ORAL
     Route: 048

REACTIONS (3)
  - TINNITUS [None]
  - HEADACHE [None]
  - NAUSEA [None]
